FAERS Safety Report 25870868 (Version 2)
Quarter: 2025Q4

REPORT INFORMATION
  Report Type: Spontaneous
  Country: JP (occurrence: JP)
  Receive Date: 20251001
  Receipt Date: 20251015
  Transmission Date: 20260118
  Serious: Yes (Hospitalization)
  Sender: EISAI
  Company Number: JP-Eisai-202507931_LEN-EC_P_1

PATIENT
  Sex: Female

DRUGS (2)
  1. LENVIMA [Suspect]
     Active Substance: LENVATINIB
     Indication: Endometrial cancer
     Route: 048
     Dates: start: 20250818, end: 20250904
  2. KEYTRUDA [Suspect]
     Active Substance: PEMBROLIZUMAB
     Indication: Endometrial cancer
     Dosage: ONE CYCLE.
     Route: 042
     Dates: start: 20250818, end: 20250818

REACTIONS (2)
  - Immune-mediated encephalitis [Recovering/Resolving]
  - Immobilisation syndrome [Not Recovered/Not Resolved]

NARRATIVE: CASE EVENT DATE: 20250101
